FAERS Safety Report 12781461 (Version 1)
Quarter: 2016Q3

REPORT INFORMATION
  Report Type: Spontaneous
  Country: IQ (occurrence: IQ)
  Receive Date: 20160926
  Receipt Date: 20160926
  Transmission Date: 20161109
  Serious: Yes (Death)
  Sender: FDA-Public Use
  Company Number: IQ-ASTRAZENECA-2016SE99874

PATIENT
  Age: 8 Week
  Sex: Female
  Weight: 3.5 kg

DRUGS (4)
  1. VANCOMYCIN [Concomitant]
     Active Substance: VANCOMYCIN
  2. CEFTRIAXON [Concomitant]
     Active Substance: CEFTRIAXONE
  3. PULMICORT TURBUHALER [Suspect]
     Active Substance: BUDESONIDE
     Indication: RESPIRATORY DISORDER
     Route: 055
     Dates: start: 20160827, end: 20160830
  4. AMINOPHYLLINE. [Concomitant]
     Active Substance: AMINOPHYLLINE

REACTIONS (3)
  - Cyanosis [Fatal]
  - Bradycardia [Fatal]
  - Apnoeic attack [Fatal]
